FAERS Safety Report 6229626-X (Version None)
Quarter: 2009Q2

REPORT INFORMATION
  Report Type: 
  Country: None (occurrence: None)
  Receive Date: 20090615
  Receipt Date: 20090608
  Transmission Date: 20091009
  Serious: Yes (Death)
  Sender: FDA-Public Use
  Company Number: A0790978A

PATIENT
  Age: 53 Year
  Sex: Female
  Weight: 126.4 kg

DRUGS (13)
  1. AVANDIA [Suspect]
     Dosage: 4MG TWICE PER DAY
     Route: 048
     Dates: start: 20020801, end: 20070401
  2. AVANDAMET [Suspect]
     Route: 048
     Dates: end: 20050201
  3. TOPROL-XL [Concomitant]
  4. LISINOPRIL [Concomitant]
  5. ATENOLOL [Concomitant]
  6. METFORMIN HYDROCHLORIDE [Concomitant]
  7. DIOVAN HCT [Concomitant]
  8. CRESTOR [Concomitant]
  9. PREMARIN [Concomitant]
  10. FLEXERIL [Concomitant]
  11. NAPROXEN [Concomitant]
  12. NEURONTIN [Concomitant]
  13. LORCET-HD [Concomitant]

REACTIONS (3)
  - CARDIAC FAILURE CONGESTIVE [None]
  - CARDIO-RESPIRATORY ARREST [None]
  - MYOCARDIAL INFARCTION [None]
